FAERS Safety Report 16299690 (Version 1)
Quarter: 2019Q2

REPORT INFORMATION
  Report Type: Spontaneous
  Country: NL (occurrence: NL)
  Receive Date: 20190510
  Receipt Date: 20190510
  Transmission Date: 20190711
  Serious: Yes (Hospitalization)
  Sender: FDA-Public Use
  Company Number: NL-TEVA-2019-NL-1047843

PATIENT
  Age: 58 Year
  Sex: Male

DRUGS (3)
  1. PANTOPRAZOLEPANTOPRAZOL MAAGSAPRESISTENTE TABLET, 40 MG (MILLIGRAM) [Suspect]
     Active Substance: PANTOPRAZOLE
     Indication: GASTROOESOPHAGEAL REFLUX DISEASE
     Dosage: 1 X DAY 1 TABLET
     Dates: start: 20190301, end: 20190401
  2. METOPROLOL RET 50 [Concomitant]
  3. IBUPROFEN 500MG [Concomitant]
     Active Substance: IBUPROFEN

REACTIONS (1)
  - Arrhythmia [Recovered/Resolved]

NARRATIVE: CASE EVENT DATE: 20190301
